FAERS Safety Report 9272383 (Version 1)
Quarter: 2013Q2

REPORT INFORMATION
  Report Type: Spontaneous
  Country: US (occurrence: US)
  Receive Date: 20130506
  Receipt Date: 20130506
  Transmission Date: 20140414
  Serious: No
  Sender: FDA-Public Use
  Company Number: US-ASTRAZENECA-2012SE90921

PATIENT
  Sex: Male

DRUGS (1)
  1. PRILOSEC OTC [Suspect]
     Dosage: UNKNOWN
     Route: 048

REACTIONS (2)
  - Bone disorder [Not Recovered/Not Resolved]
  - Posture abnormal [Not Recovered/Not Resolved]
